FAERS Safety Report 4742124-5 (Version None)
Quarter: 2005Q3

REPORT INFORMATION
  Report Type: 
  Country: None (occurrence: None)
  Receive Date: 20050808
  Receipt Date: 20050722
  Transmission Date: 20060218
  Serious: Yes (Hospitalization)
  Sender: FDA-Public Use
  Company Number: CERZ-10955

PATIENT
  Age: 57 Year
  Sex: Female

DRUGS (2)
  1. CEREZYME [Suspect]
     Indication: GAUCHER'S DISEASE
     Dosage: 1000 UNITS Q2WKS IV
     Route: 042
  2. MAXZIDE [Concomitant]

REACTIONS (2)
  - APPENDICEAL ABSCESS [None]
  - BLOOD POTASSIUM DECREASED [None]
